FAERS Safety Report 4763461-4 (Version None)
Quarter: 2005Q3

REPORT INFORMATION
  Report Type: 
  Country: None (occurrence: None)
  Receive Date: 20050908
  Receipt Date: 20050722
  Transmission Date: 20060218
  Serious: Yes (Other)
  Sender: FDA-Public Use
  Company Number: US-AMGEN-US143911

PATIENT
  Sex: Female
  Weight: 59 kg

DRUGS (14)
  1. ENBREL [Suspect]
     Indication: RHEUMATOID ARTHRITIS
     Route: 058
     Dates: start: 20031001, end: 20050201
  2. METHOTREXATE [Concomitant]
  3. PREDNISONE TAB [Concomitant]
     Route: 048
  4. PREDNISONE TAB [Concomitant]
  5. NORVASC [Concomitant]
     Route: 048
  6. CLARINEX [Concomitant]
     Route: 048
  7. ZYRTEC [Concomitant]
     Route: 048
  8. BENADRYL [Concomitant]
  9. RITALIN [Concomitant]
  10. WELLBUTRIN [Concomitant]
  11. LASIX [Concomitant]
  12. MS CONTIN [Concomitant]
  13. NEURONTIN [Concomitant]
  14. TRAZODONE [Concomitant]

REACTIONS (2)
  - CHOREA [None]
  - TREMOR [None]
